FAERS Safety Report 21999381 (Version 1)
Quarter: 2023Q1

REPORT INFORMATION
  Report Type: Spontaneous
  Country: US (occurrence: None)
  Receive Date: 20230215
  Receipt Date: 20230215
  Transmission Date: 20230417
  Serious: Yes (unspecified)
  Sender: FDA-Public Use
  Company Number: None

PATIENT
  Age: 76 Year
  Sex: Female
  Weight: 54.43 kg

DRUGS (1)
  1. ARTIFICIAL TEARS LUBRICANT EYE DROPS (CARBOXYMETHYLCELLULOSE SODIUM) [Suspect]
     Active Substance: CARBOXYMETHYLCELLULOSE SODIUM
     Dosage: FREQUENCY : 4 TIMES A DAY;?
     Route: 047

REACTIONS (2)
  - Conjunctivitis [None]
  - Product quality issue [None]

NARRATIVE: CASE EVENT DATE: 20230102
